FAERS Safety Report 7379150-6 (Version None)
Quarter: 2011Q1

REPORT INFORMATION
  Report Type: 
  Country: None (occurrence: None)
  Receive Date: 20110328
  Receipt Date: 20110315
  Transmission Date: 20110831
  Serious: Yes (Hospitalization)
  Sender: FDA-Public Use
  Company Number: PHHY2011US23531

PATIENT
  Sex: Male
  Weight: 83.9 kg

DRUGS (1)
  1. EXJADE [Suspect]
     Dosage: 2000 MG, DAILY
     Route: 048

REACTIONS (1)
  - CELLULITIS [None]
